FAERS Safety Report 16326821 (Version 1)
Quarter: 2019Q2

REPORT INFORMATION
  Report Type: Spontaneous
  Country: US (occurrence: US)
  Receive Date: 20190411
  Receipt Date: 20190411
  Transmission Date: 20190711
  Serious: Yes (Life-Threatening, Hospitalization, Disabling)
  Sender: FDA-Public Use
  Company Number: None

PATIENT

DRUGS (4)
  1. ASPIRIN. [Concomitant]
     Active Substance: ASPIRIN
  2. LOSARTAN POTASSIUM. [Suspect]
     Active Substance: LOSARTAN POTASSIUM
     Indication: HYPERTENSION
     Dosage: ?          QUANTITY:1 DF DOSAGE FORM;?
     Route: 048
     Dates: start: 20190228, end: 20190322
  3. COREG [Concomitant]
     Active Substance: CARVEDILOL
  4. DIGOXIN. [Concomitant]
     Active Substance: DIGOXIN

REACTIONS (9)
  - Urinary incontinence [None]
  - Drug ineffective [None]
  - Product substitution issue [None]
  - Gait disturbance [None]
  - Functional gastrointestinal disorder [None]
  - Dizziness [None]
  - Confusional state [None]
  - Blood pressure inadequately controlled [None]
  - Asthenia [None]

NARRATIVE: CASE EVENT DATE: 20190228
